FAERS Safety Report 11671824 (Version 2)
Quarter: 2015Q4

REPORT INFORMATION
  Report Type: Spontaneous
  Country: US (occurrence: US)
  Receive Date: 20151027
  Receipt Date: 20151110
  Transmission Date: 20160304
  Serious: No
  Sender: FDA-Public Use
  Company Number: US-ELI_LILLY_AND_COMPANY-US201002002202

PATIENT
  Age: 68 Year
  Sex: Female

DRUGS (13)
  1. FORTEO [Suspect]
     Active Substance: TERIPARATIDE
     Indication: OSTEOPOROSIS
     Dosage: 20 UG, DAILY (1/D)
     Dates: start: 20100120
  2. LAMOTRIGINE. [Concomitant]
     Active Substance: LAMOTRIGINE
     Dosage: 100 MG, 2/D
  3. VITAMIN D [Interacting]
     Active Substance: CHOLECALCIFEROL
     Indication: CALCIUM DEFICIENCY
     Dosage: 50000 U, WEEKLY (1/W)
  4. PANTOPRAZOLE [Concomitant]
     Active Substance: PANTOPRAZOLE SODIUM
     Dosage: 40 MG, DAILY (1/D)
  5. TOPIRAMATE. [Concomitant]
     Active Substance: TOPIRAMATE
     Dosage: 100 MG, 2/D
  6. FEXOFENADINE [Concomitant]
     Active Substance: FEXOFENADINE\FEXOFENADINE HYDROCHLORIDE
     Dosage: 60 MG, DAILY (1/D)
  7. FISH OIL [Concomitant]
     Active Substance: FISH OIL
     Dosage: 1000 MG, 2/D
  8. VITAMIN B [Concomitant]
     Active Substance: VITAMIN B
     Dosage: 50000 U, WEEKLY (1/W)
  9. VITAMIN D [Interacting]
     Active Substance: CHOLECALCIFEROL
     Dosage: 1000 U, DAILY (1/D)
  10. FORTEO [Interacting]
     Active Substance: TERIPARATIDE
     Dosage: 20 UG, QD
  11. FORTEO [Interacting]
     Active Substance: TERIPARATIDE
     Dosage: 20 UG, QD
     Dates: end: 201112
  12. FORTEO [Interacting]
     Active Substance: TERIPARATIDE
     Dosage: 20 UG, DAILY (1/D)
  13. ARTHROTEC [Concomitant]
     Active Substance: DICLOFENAC SODIUM\MISOPROSTOL
     Indication: PAIN
     Dosage: 50 MG, AS NEEDED

REACTIONS (28)
  - Dysuria [Recovered/Resolved]
  - Pain [Unknown]
  - Gait disturbance [Unknown]
  - Lacrimation increased [Unknown]
  - Rib fracture [Recovering/Resolving]
  - Drug interaction [Unknown]
  - Sleep disorder [Unknown]
  - Nephrolithiasis [Recovered/Resolved]
  - Nephrolithiasis [Recovered/Resolved]
  - Nephrolithiasis [Recovered/Resolved]
  - Malaise [Unknown]
  - Muscle spasms [Unknown]
  - Dysuria [Recovering/Resolving]
  - Headache [Not Recovered/Not Resolved]
  - Hypophagia [Unknown]
  - Vitamin D decreased [Recovering/Resolving]
  - Nephrolithiasis [Recovered/Resolved]
  - Vomiting [Unknown]
  - Arthralgia [Recovered/Resolved]
  - Drug dose omission [Recovered/Resolved]
  - Pain in extremity [Not Recovered/Not Resolved]
  - Blood calcium decreased [Unknown]
  - Cystitis [Unknown]
  - Cystitis [Recovering/Resolving]
  - Nausea [Recovered/Resolved]
  - Nausea [Unknown]
  - Calcium metabolism disorder [Unknown]
  - Blood calcium increased [Unknown]

NARRATIVE: CASE EVENT DATE: 20100201
